FAERS Safety Report 16324407 (Version 1)
Quarter: 2019Q2

REPORT INFORMATION
  Report Type: Spontaneous
  Country: DK (occurrence: DK)
  Receive Date: 20190517
  Receipt Date: 20190517
  Transmission Date: 20190711
  Serious: Yes (Hospitalization, Other)
  Sender: FDA-Public Use
  Company Number: DK-AUROBINDO-AUR-APL-2019-027177

PATIENT

DRUGS (3)
  1. IMOZOP [Concomitant]
     Active Substance: ZOPICLONE
     Indication: INSOMNIA
     Dosage: 3.75 MILLIGRAM, AS NECESSARY
     Route: 048
     Dates: start: 20180918, end: 201904
  2. GABAPENTIN 300MG CAPSULES [Suspect]
     Active Substance: GABAPENTIN
     Indication: EPILEPSY
     Dosage: 900 MILLIGRAM, ONCE A DAY
     Route: 048
     Dates: start: 20190401, end: 20190423
  3. TOILAX [Concomitant]
     Active Substance: BISACODYL
     Indication: CONSTIPATION
     Dosage: 5 MILLIGRAM, AS NECESSARY
     Route: 048
     Dates: start: 20190125

REACTIONS (5)
  - Hypersexuality [Recovering/Resolving]
  - Aggression [Recovering/Resolving]
  - Idiosyncratic drug reaction [Recovering/Resolving]
  - Suicidal ideation [Recovering/Resolving]
  - Personality change [Recovering/Resolving]

NARRATIVE: CASE EVENT DATE: 20190407
